FAERS Safety Report 23154934 (Version 1)
Quarter: 2023Q4

REPORT INFORMATION
  Report Type: Report from Study
  Country: PL (occurrence: PL)
  Receive Date: 20231107
  Receipt Date: 20231107
  Transmission Date: 20240110
  Serious: Yes (Death, Hospitalization)
  Sender: FDA-Public Use
  Company Number: PL-CTI BIOPHARMA-2022PL03038

PATIENT
  Age: 61 Year
  Sex: Female

DRUGS (3)
  1. PACRITINIB [Suspect]
     Active Substance: PACRITINIB
     Indication: Myelofibrosis
     Dosage: 200 MILLIGRAM, BID
     Route: 048
     Dates: start: 20220420, end: 20220906
  2. MAGNESIUM CITRATE\PYRIDOXINE [Concomitant]
     Active Substance: MAGNESIUM CITRATE\PYRIDOXINE
     Indication: Hypomagnesaemia
     Dosage: QD
     Route: 048
     Dates: start: 20220511
  3. POTASSIUM CHLORIDE [Concomitant]
     Active Substance: POTASSIUM CHLORIDE
     Indication: Prophylaxis
     Dosage: UNK, BID
     Route: 048
     Dates: start: 20220511

REACTIONS (2)
  - Pneumonia cytomegaloviral [Recovered/Resolved with Sequelae]
  - Pneumonia cytomegaloviral [Fatal]

NARRATIVE: CASE EVENT DATE: 20220906
